FAERS Safety Report 16471180 (Version 1)
Quarter: 2019Q2

REPORT INFORMATION
  Report Type: Spontaneous
  Country: US (occurrence: US)
  Receive Date: 20190624
  Receipt Date: 20190624
  Transmission Date: 20190711
  Serious: No
  Sender: FDA-Public Use
  Company Number: US-ARRAY-2019-05760

PATIENT

DRUGS (2)
  1. MEKTOVI [Suspect]
     Active Substance: BINIMETINIB
     Indication: METASTASIS
     Dosage: 30 MG, BID
     Route: 048
     Dates: start: 20190408
  2. BRAFTOVI [Suspect]
     Active Substance: ENCORAFENIB
     Indication: METASTASIS
     Dosage: 150 MG, QD
     Route: 048
     Dates: start: 20190408

REACTIONS (4)
  - Nausea [Unknown]
  - Vomiting [Unknown]
  - Blood creatinine increased [Unknown]
  - Off label use [Unknown]

NARRATIVE: CASE EVENT DATE: 20190408
